FAERS Safety Report 16927227 (Version 4)
Quarter: 2020Q3

REPORT INFORMATION
  Report Type: Report from Study
  Country: SV (occurrence: SV)
  Receive Date: 20191016
  Receipt Date: 20200819
  Transmission Date: 20201102
  Serious: Yes (Hospitalization)
  Sender: FDA-Public Use
  Company Number: NVSC2019SV005458

PATIENT
  Age: 67 Year
  Sex: Female
  Weight: 49.89 kg

DRUGS (2)
  1. GLIVEC [Suspect]
     Active Substance: IMATINIB MESYLATE
     Dosage: 400 MG, QD
     Route: 065
  2. GLIVEC [Suspect]
     Active Substance: IMATINIB MESYLATE
     Indication: CHRONIC MYELOID LEUKAEMIA
     Dosage: 4 DF (4 X 100 MG)
     Route: 065

REACTIONS (7)
  - Drug resistance [Unknown]
  - Neutrophil count increased [Recovering/Resolving]
  - Platelet count increased [Recovering/Resolving]
  - Haemoglobin decreased [Recovering/Resolving]
  - Malaise [Unknown]
  - White blood cell count increased [Recovering/Resolving]
  - Asthenia [Unknown]

NARRATIVE: CASE EVENT DATE: 201904
